FAERS Safety Report 5038890-4 (Version None)
Quarter: 2006Q2

REPORT INFORMATION
  Report Type: 
  Country: None (occurrence: None)
  Receive Date: 20060626
  Receipt Date: 20060626
  Transmission Date: 20061013
  Serious: Yes (Death, Hospitalization)
  Sender: FDA-Public Use
  Company Number: None

PATIENT
  Sex: Female
  Weight: 39.5 kg

DRUGS (3)
  1. CYTARABINE [Suspect]
     Dosage: 128 MG
     Dates: start: 20060615
  2. DAUNORUBICIN HCL [Suspect]
     Dosage: 77 MG
     Dates: start: 20060613
  3. DEXAMETHASONE TAB [Suspect]
     Dosage: 10 MG
     Dates: start: 20060613

REACTIONS (3)
  - LUNG INFILTRATION [None]
  - PNEUMONIA [None]
  - RESPIRATORY FAILURE [None]
